FAERS Safety Report 23018136 (Version 5)
Quarter: 2023Q4

REPORT INFORMATION
  Report Type: Spontaneous
  Country: US (occurrence: US)
  Receive Date: 20231003
  Receipt Date: 20231204
  Transmission Date: 20240109
  Serious: No
  Sender: FDA-Public Use
  Company Number: US-JNJFOC-20230967328

PATIENT
  Age: 69 Year
  Sex: Male
  Weight: 124.85 kg

DRUGS (15)
  1. SIMPONI [Suspect]
     Active Substance: GOLIMUMAB
     Indication: Rheumatoid arthritis
     Dosage: STRENGTH: 50.00 MG / 0.50 ML
     Route: 058
     Dates: start: 202304
  2. PRALUENT [Concomitant]
     Active Substance: ALIROCUMAB
  3. RASUVO [Concomitant]
     Active Substance: METHOTREXATE SODIUM
  4. ALLOPURINOL [Concomitant]
     Active Substance: ALLOPURINOL
  5. HYDROXYZINE [Concomitant]
     Active Substance: HYDROXYZINE HYDROCHLORIDE
  6. SULFASALAZINE [Concomitant]
     Active Substance: SULFASALAZINE
  7. TAMSULOSIN [Concomitant]
     Active Substance: TAMSULOSIN
  8. ASPIRIN [Concomitant]
     Active Substance: ASPIRIN
  9. COLCHICINE [Concomitant]
     Active Substance: COLCHICINE
  10. FEBUXOSTAT [Concomitant]
     Active Substance: FEBUXOSTAT
  11. PREGABALIN [Concomitant]
     Active Substance: PREGABALIN
  12. NEBIVOLOL [Concomitant]
     Active Substance: NEBIVOLOL
  13. MELOXICAM [Concomitant]
     Active Substance: MELOXICAM
  14. HYDROXYCHLOROQUINE [Concomitant]
     Active Substance: HYDROXYCHLOROQUINE
  15. FOLIC ACID [Concomitant]
     Active Substance: FOLIC ACID

REACTIONS (4)
  - Device deployment issue [Unknown]
  - Product dose omission issue [Unknown]
  - Product storage error [Unknown]
  - Pain [Unknown]

NARRATIVE: CASE EVENT DATE: 20230928
